FAERS Safety Report 8687968 (Version 2)
Quarter: 2015Q2

REPORT INFORMATION
  Report Type: Report from Study
  Country: US (occurrence: US)
  Receive Date: 20120727
  Receipt Date: 20150629
  Transmission Date: 20150821
  Serious: Yes (Death)
  Sender: FDA-Public Use
  Company Number: US-ROCHE-1086874

PATIENT
  Age: 57 Year
  Sex: Female

DRUGS (2)
  1. ISUPREL [Concomitant]
     Active Substance: ISOPROTERENOL HYDROCHLORIDE
  2. ACTIVASE [Suspect]
     Active Substance: ALTEPLASE
     Indication: ACUTE MYOCARDIAL INFARCTION
     Route: 042

REACTIONS (6)
  - Electrocardiogram ST segment elevation [Fatal]
  - Death [Fatal]
  - Blood pressure immeasurable [Fatal]
  - Vasoconstriction [Fatal]
  - Metabolic alkalosis [Fatal]
  - Respiratory alkalosis [Fatal]

NARRATIVE: CASE EVENT DATE: 19930221
